FAERS Safety Report 7238554-2 (Version None)
Quarter: 2011Q1

REPORT INFORMATION
  Report Type: 
  Country: None (occurrence: None)
  Receive Date: 20110119
  Receipt Date: 20110119
  Transmission Date: 20110831
  Serious: Yes (Life-Threatening, Hospitalization)
  Sender: FDA-Public Use
  Company Number: None

PATIENT
  Age: 39 Year
  Sex: Male

DRUGS (1)
  1. DICLOFENAC SODIUM [Suspect]
     Indication: INTERVERTEBRAL DISC PROTRUSION
     Dates: start: 20101101, end: 20101107

REACTIONS (1)
  - ANAPHYLACTIC SHOCK [None]
